FAERS Safety Report 9470925 (Version 1)
Quarter: 2013Q3

REPORT INFORMATION
  Report Type: Spontaneous
  Country: US (occurrence: None)
  Receive Date: 20130820
  Receipt Date: 20130820
  Transmission Date: 20140515
  Serious: Yes (Life-Threatening, Disabling)
  Sender: FDA-Public Use
  Company Number: None

PATIENT
  Age: 41 Year
  Sex: Male
  Weight: 86.18 kg

DRUGS (1)
  1. STELARA [Suspect]
     Indication: PSORIASIS
     Dosage: INJECTION
     Dates: start: 2008, end: 2009

REACTIONS (5)
  - Tachycardia [None]
  - Neoplasm [None]
  - Psoriasis [None]
  - Tooth loss [None]
  - Cardiac disorder [None]
